FAERS Safety Report 9198390 (Version 1)
Quarter: 2013Q1

REPORT INFORMATION
  Report Type: Spontaneous
  Country: US (occurrence: None)
  Receive Date: 20120709
  Receipt Date: 20120709
  Transmission Date: 20140127
  Serious: Yes (Hospitalization)
  Sender: FDA-Public Use
  Company Number: PHHY2011US65711

PATIENT
  Age: 65 Year
  Sex: Female

DRUGS (3)
  1. GLEEVEC (IMATINIB) UNKNOWN [Suspect]
     Indication: GASTROINTESTINAL STROMAL TUMOUR
  2. PLAVIX (CLOPIDOGREL SULFATE) [Concomitant]
  3. PRILOSEC (OMEPRAZSOLE) [Suspect]

REACTIONS (1)
  - Gastrointestinal haemorrhage [None]
